FAERS Safety Report 18529868 (Version 1)
Quarter: 2020Q4

REPORT INFORMATION
  Report Type: Spontaneous
  Country: US (occurrence: US)
  Receive Date: 20201120
  Receipt Date: 20201120
  Transmission Date: 20210114
  Serious: No
  Sender: FDA-Public Use
  Company Number: US-NOVOPROD-753310

PATIENT
  Age: 74 Year
  Sex: Male

DRUGS (2)
  1. NOVOLOG [Suspect]
     Active Substance: INSULIN ASPART
     Indication: TYPE 2 DIABETES MELLITUS
     Dosage: 5 UNITS BEFORE EACH MEAL
     Route: 058
     Dates: start: 2002
  2. LEVEMIR [Concomitant]
     Active Substance: INSULIN DETEMIR
     Indication: TYPE 2 DIABETES MELLITUS
     Dosage: AT NIGHT
     Route: 058

REACTIONS (3)
  - Device malfunction [Recovered/Resolved]
  - Fall [Unknown]
  - Blood glucose increased [Recovered/Resolved]

NARRATIVE: CASE EVENT DATE: 20200909
